FAERS Safety Report 10011026 (Version 1)
Quarter: 2014Q1

REPORT INFORMATION
  Report Type: Spontaneous
  Country: TW (occurrence: TW)
  Receive Date: 20140314
  Receipt Date: 20140314
  Transmission Date: 20141002
  Serious: Yes (Hospitalization)
  Sender: FDA-Public Use
  Company Number: TW-BAXTER-2014BAX012489

PATIENT
  Sex: Male

DRUGS (1)
  1. BAXTER EXTRANEAL PERITONEAL DIALYSIS SOLUTION WITH 7.5% ICODEXTRIN [Suspect]
     Indication: PERITONEAL DIALYSIS
     Route: 033

REACTIONS (1)
  - Pneumonia [Unknown]
